FAERS Safety Report 10143319 (Version 2)
Quarter: 2014Q2

REPORT INFORMATION
  Report Type: Spontaneous
  Country: CA (occurrence: CA)
  Receive Date: 20140430
  Receipt Date: 20140430
  Transmission Date: 20141212
  Serious: Yes (Death, Life-Threatening, Hospitalization, Disabling)
  Sender: FDA-Public Use
  Company Number: CA-ROCHE-701452

PATIENT
  Age: 66 Year
  Sex: Female

DRUGS (4)
  1. RITUXAN [Suspect]
     Indication: EXTRANODAL MARGINAL ZONE B-CELL LYMPHOMA (MALT TYPE)
     Route: 042
     Dates: start: 20080211, end: 200811
  2. RITUXAN [Suspect]
     Dosage: MAINTAINENCE MONOTHERAPY
     Route: 042
     Dates: start: 200811, end: 20100201
  3. FOSAMAX [Concomitant]
     Route: 048
  4. PREDNISONE [Concomitant]
     Indication: RHEUMATOID ARTHRITIS
     Route: 048

REACTIONS (2)
  - Progressive multifocal leukoencephalopathy [Fatal]
  - Cerebral disorder [Not Recovered/Not Resolved]
